FAERS Safety Report 16868226 (Version 1)
Quarter: 2019Q3

REPORT INFORMATION
  Report Type: Spontaneous
  Country: CA (occurrence: CA)
  Receive Date: 20190930
  Receipt Date: 20190930
  Transmission Date: 20191005
  Serious: Yes (Other)
  Sender: FDA-Public Use
  Company Number: CA-PFIZER INC-2019412513

PATIENT
  Sex: Female

DRUGS (5)
  1. LEFLUNOMIDE. [Concomitant]
     Active Substance: LEFLUNOMIDE
     Indication: PSORIATIC ARTHROPATHY
     Dosage: UNK UNK, 1X/DAY
     Route: 048
  2. INFLIXIMAB [Concomitant]
     Active Substance: INFLIXIMAB
     Indication: PSORIATIC ARTHROPATHY
     Dosage: 300 MEQ, UNK
     Route: 042
  3. ACTONEL [Concomitant]
     Active Substance: RISEDRONATE SODIUM
     Dosage: UNK, 1X/DAY
     Route: 048
  4. CELEBREX [Concomitant]
     Active Substance: CELECOXIB
     Dosage: UNK UNK, 2X/DAY
     Route: 048
  5. METHOTREXATE SODIUM. [Suspect]
     Active Substance: METHOTREXATE SODIUM
     Indication: PSORIATIC ARTHROPATHY
     Dosage: UNK

REACTIONS (2)
  - Liver injury [Unknown]
  - Drug ineffective [Unknown]
